FAERS Safety Report 25035173 (Version 1)
Quarter: 2025Q1

REPORT INFORMATION
  Report Type: Spontaneous
  Country: CL (occurrence: CL)
  Receive Date: 20250304
  Receipt Date: 20250304
  Transmission Date: 20250409
  Serious: Yes (Hospitalization, Other)
  Sender: RANBAXY
  Company Number: CL-SUN PHARMACEUTICAL INDUSTRIES LTD-2025R1-496605

PATIENT
  Age: 15 Month
  Sex: Female

DRUGS (4)
  1. CALCITRIOL [Suspect]
     Active Substance: CALCITRIOL
     Indication: Hypophosphataemic osteomalacia
     Dosage: 0.5 MICROGRAM, DAILY
     Route: 065
  2. CALCIUM CARBONATE [Suspect]
     Active Substance: CALCIUM CARBONATE
     Indication: Hypophosphataemic osteomalacia
     Route: 065
  3. ERGOCALCIFEROL [Suspect]
     Active Substance: ERGOCALCIFEROL
     Indication: Hypophosphataemic osteomalacia
     Route: 065
  4. UNSPECIFIED INGREDIENT [Suspect]
     Active Substance: UNSPECIFIED INGREDIENT
     Indication: Hypophosphataemic osteomalacia
     Dosage: 30 MILLIGRAM/KILOGRAM, DAILY
     Route: 065

REACTIONS (6)
  - Therapy partial responder [Unknown]
  - Hepatomegaly [Recovering/Resolving]
  - Proteinuria [Recovering/Resolving]
  - Succinylacetone increased [Recovering/Resolving]
  - Amino acid level increased [Recovering/Resolving]
  - Alpha 1 foetoprotein increased [Recovering/Resolving]
